FAERS Safety Report 9035358 (Version 1)
Quarter: 2013Q1

REPORT INFORMATION
  Report Type: Report from Study
  Country: US (occurrence: US)
  Receive Date: 20130129
  Receipt Date: 20130129
  Transmission Date: 20140127
  Serious: No
  Sender: FDA-Public Use
  Company Number: US-ABBOTT-11P-163-0881248-00

PATIENT
  Age: 58 Year
  Sex: Female

DRUGS (20)
  1. HUMIRA 40 MG/0.8 ML PEN [Suspect]
     Indication: CROHN^S DISEASE
     Dosage: 160 MG INTIAL LOADING DOSE
     Dates: start: 20111122
  2. HUMIRA 40 MG/0.8 ML PEN [Suspect]
  3. SYNTHROID [Concomitant]
     Indication: HYPOTHYROIDISM
  4. OMEPRAZOLE [Concomitant]
     Indication: GASTROOESOPHAGEAL REFLUX DISEASE
  5. LYRICA [Concomitant]
     Indication: PAIN MANAGEMENT
  6. MICARDIS [Concomitant]
     Indication: BLOOD PRESSURE
  7. DICLOFENAC [Concomitant]
     Indication: ARTHRITIS
  8. METHADONE [Concomitant]
     Indication: PAIN MANAGEMENT
     Dosage: 6 TABLETS DAILY IN DIVIDED DOSES
  9. SKELAXIN [Concomitant]
     Indication: PAIN
     Dosage: 4 TIMES A DAY AND AS NEEDED
  10. LIDODERM [Concomitant]
     Indication: PAIN
     Dosage: PATCHES 5% TID
  11. ESTRADIOL COMBINATION [Concomitant]
     Indication: HORMONE REPLACEMENT THERAPY
     Dosage: 1.0 MG/0.5 MG DAILY
  12. ALIGN [Concomitant]
     Indication: PRODUCT USED FOR UNKNOWN INDICATION
  13. POLY IRON [Concomitant]
     Indication: ANAEMIA
  14. MULTIPLE VITAMINS [Concomitant]
     Indication: PRODUCT USED FOR UNKNOWN INDICATION
  15. CALCIUM + VITAMIN D [Concomitant]
     Indication: PRODUCT USED FOR UNKNOWN INDICATION
  16. POTASSIUM [Concomitant]
     Indication: PRODUCT USED FOR UNKNOWN INDICATION
  17. MAGNESIUM [Concomitant]
     Indication: PRODUCT USED FOR UNKNOWN INDICATION
  18. LYSINE [Concomitant]
     Indication: PRODUCT USED FOR UNKNOWN INDICATION
  19. B12 [Concomitant]
     Indication: SUPPLEMENTATION THERAPY
  20. HYDROCODONE [Concomitant]
     Indication: PAIN MANAGEMENT
     Dosage: 10MG/500MG FOUR TIMES DAILY

REACTIONS (3)
  - Injection site pain [Recovered/Resolved]
  - Scoliosis [Unknown]
  - Injection site pain [Recovered/Resolved]
